FAERS Safety Report 17556400 (Version 2)
Quarter: 2020Q2

REPORT INFORMATION
  Report Type: Report from Study
  Country: US (occurrence: US)
  Receive Date: 20200318
  Receipt Date: 20200415
  Transmission Date: 20200713
  Serious: Yes (Other)
  Sender: FDA-Public Use
  Company Number: US-SA-2020SA069692

PATIENT
  Age: 50 Year
  Sex: Male

DRUGS (14)
  1. LYRICA [Concomitant]
     Active Substance: PREGABALIN
     Indication: PAIN IN EXTREMITY
     Dosage: 75 MG
  2. LYRICA [Concomitant]
     Active Substance: PREGABALIN
     Indication: CONDITION AGGRAVATED
     Dosage: 100 MG, BID
  3. ISOSORBIDE. [Concomitant]
     Active Substance: ISOSORBIDE
     Dosage: 60 MG, QD
  4. VENLAFAXINE [Concomitant]
     Active Substance: VENLAFAXINE HYDROCHLORIDE
     Dosage: 75 MG, QD
  5. PANTOPRAZOLE [Concomitant]
     Active Substance: PANTOPRAZOLE
     Dosage: 20 MG, QD
  6. ATORVASTATIN [Concomitant]
     Active Substance: ATORVASTATIN
     Dosage: 25 MG, QD
  7. TIZANIDINE. [Concomitant]
     Active Substance: TIZANIDINE
     Dosage: 2 MG, TID
  8. TRAZODONE [Concomitant]
     Active Substance: TRAZODONE HYDROCHLORIDE
     Dosage: 100 MG, QD
  9. VITAMIN D [VITAMIN D NOS] [Concomitant]
     Active Substance: VITAMIN D NOS
     Dosage: 400 IU, QD
  10. AMANTADINE. [Concomitant]
     Active Substance: AMANTADINE HYDROCHLORIDE
     Dosage: 100 MG, BID
  11. AMPYRA [Concomitant]
     Active Substance: DALFAMPRIDINE
     Dosage: 10 MG, BID
  12. ATENOLOL. [Concomitant]
     Active Substance: ATENOLOL
     Dosage: 12.5 MG, QD
  13. ASPIRIN [ACETYLSALICYLIC ACID] [Concomitant]
     Active Substance: ASPIRIN
     Dosage: 81 MG, QD
  14. TERIFLUNOMIDE. [Suspect]
     Active Substance: TERIFLUNOMIDE
     Indication: MULTIPLE SCLEROSIS
     Dosage: 14 MG, QD
     Route: 048
     Dates: start: 2020

REACTIONS (7)
  - Multiple sclerosis [Not Recovered/Not Resolved]
  - Condition aggravated [Not Recovered/Not Resolved]
  - Fall [Unknown]
  - Product dose omission [Unknown]
  - Pain in extremity [Not Recovered/Not Resolved]
  - Varicose vein operation [Unknown]
  - Mobility decreased [Unknown]

NARRATIVE: CASE EVENT DATE: 202003
